FAERS Safety Report 6546899-4 (Version None)
Quarter: 2010Q1

REPORT INFORMATION
  Report Type: 
  Country: None (occurrence: None)
  Receive Date: 20100119
  Receipt Date: 20100104
  Transmission Date: 20100710
  Serious: Yes (Hospitalization, Other)
  Sender: FDA-Public Use
  Company Number: 2009AC000493

PATIENT
  Age: 58 Year
  Sex: Male

DRUGS (14)
  1. DIGOXIN [Suspect]
     Dosage: 0.25 MG; PO
     Route: 048
  2. FLOMAX [Concomitant]
  3. DOXYCYCLINE [Concomitant]
  4. IBUPROFEN [Concomitant]
  5. ACIPHEX [Concomitant]
  6. LEVAQUIN [Concomitant]
  7. ACEBUTOLOL [Concomitant]
  8. OXYCODONE [Concomitant]
  9. SERTRALINE HCL [Concomitant]
  10. SECTRAL [Concomitant]
  11. ASPIRIN [Concomitant]
  12. LEVITRA [Concomitant]
  13. PERCOCET [Concomitant]
  14. MOTRIN [Concomitant]

REACTIONS (8)
  - ARRHYTHMIA [None]
  - COUGH [None]
  - EPIDIDYMITIS [None]
  - EPISTAXIS [None]
  - GROIN PAIN [None]
  - HEART RATE INCREASED [None]
  - SINUS CONGESTION [None]
  - SINUSITIS [None]
